FAERS Safety Report 16658196 (Version 1)
Quarter: 2019Q3

REPORT INFORMATION
  Report Type: Spontaneous
  Country: US (occurrence: US)
  Receive Date: 20190801
  Receipt Date: 20190801
  Transmission Date: 20191004
  Serious: Yes (Hospitalization)
  Sender: FDA-Public Use
  Company Number: US-PFIZER INC-2019006849

PATIENT
  Age: 83 Year
  Sex: Male
  Weight: 88.45 kg

DRUGS (3)
  1. ROBITUSSIN HONEY MAXIMUM STRENGTH NIGHTTIME COUGH DM [Suspect]
     Active Substance: DEXTROMETHORPHAN HYDROBROMIDE\DOXYLAMINE SUCCINATE
     Indication: COUGH
  2. ROBITUSSIN HONEY MAXIMUM STRENGTH NIGHTTIME COUGH DM [Suspect]
     Active Substance: DEXTROMETHORPHAN HYDROBROMIDE\DOXYLAMINE SUCCINATE
     Indication: OROPHARYNGEAL PAIN
     Dosage: 20 MG, 2X/DAY
     Dates: start: 20190125, end: 201901
  3. ROBITUSSIN HONEY MAXIMUM STRENGTH NIGHTTIME COUGH DM [Suspect]
     Active Substance: DEXTROMETHORPHAN HYDROBROMIDE\DOXYLAMINE SUCCINATE
     Indication: RHINORRHOEA
     Dosage: 20 ML, 4X/DAY (EVERY 6 HOURS)
     Route: 048
     Dates: start: 20190102, end: 201901

REACTIONS (4)
  - Insomnia [Not Recovered/Not Resolved]
  - Therapeutic product effect incomplete [Recovered/Resolved]
  - Aptyalism [Recovered/Resolved]
  - Dry mouth [Recovered/Resolved]

NARRATIVE: CASE EVENT DATE: 201901
